FAERS Safety Report 5934230-4 (Version None)
Quarter: 2008Q4

REPORT INFORMATION
  Report Type: 
  Country: None (occurrence: None)
  Receive Date: 20081029
  Receipt Date: 20081014
  Transmission Date: 20090506
  Serious: Yes (Other)
  Sender: FDA-Public Use
  Company Number: PHBS2008KR06084

PATIENT
  Age: 14 Year
  Sex: Female

DRUGS (2)
  1. IMATINIB MESYLATE [Suspect]
     Indication: CHRONIC MYELOID LEUKAEMIA
     Dosage: 500 MG/DAY
     Dates: start: 20070501
  2. IMATINIB MESYLATE [Suspect]
     Dosage: 500MG/DAY

REACTIONS (2)
  - PAPILLOEDEMA [None]
  - PHOTOPSIA [None]
